FAERS Safety Report 4320288-5 (Version None)
Quarter: 2004Q1

REPORT INFORMATION
  Report Type: 
  Country: None (occurrence: None)
  Receive Date: 20040317
  Receipt Date: 20040305
  Transmission Date: 20041129
  Serious: Yes (Congenital Anomaly)
  Sender: FDA-Public Use
  Company Number: BE-SHR-04-022106

PATIENT
  Sex: 0

DRUGS (3)
  1. BETASERON [Suspect]
     Dosage: TRANSPLACENTAL
     Route: 064
  2. DAFALGAN [Concomitant]
  3. ACETAMINOPHEN [Concomitant]

REACTIONS (3)
  - CONGENITAL ANOMALY [None]
  - HELLP SYNDROME [None]
  - MATERNAL DRUGS AFFECTING FOETUS [None]
